FAERS Safety Report 4933158-6 (Version None)
Quarter: 2006Q1

REPORT INFORMATION
  Report Type: 
  Country: None (occurrence: None)
  Receive Date: 20060118
  Receipt Date: 20050916
  Transmission Date: 20060701
  Serious: Yes (Other)
  Sender: FDA-Public Use
  Company Number: US-JNJFOC-20050901038

PATIENT
  Sex: Female

DRUGS (1)
  1. DOXIL [Suspect]
     Indication: BREAST CANCER
     Dosage: 40 MG/M2 (COMPLETED 3 CYCLES)
     Dates: start: 20050601

REACTIONS (1)
  - PALMAR-PLANTAR ERYTHRODYSAESTHESIA SYNDROME [None]
